FAERS Safety Report 6160815-9 (Version None)
Quarter: 2009Q2

REPORT INFORMATION
  Report Type: 
  Country: None (occurrence: None)
  Receive Date: 20090420
  Receipt Date: 20090407
  Transmission Date: 20091009
  Serious: Yes (Death)
  Sender: FDA-Public Use
  Company Number: GB-GENENTECH-281280

PATIENT
  Age: 20 Year
  Sex: Female

DRUGS (1)
  1. MABTHERA [Suspect]
     Indication: SYSTEMIC LUPUS ERYTHEMATOSUS
     Dosage: 1 G, UNK
     Route: 065

REACTIONS (1)
  - DEATH [None]
